FAERS Safety Report 16991924 (Version 1)
Quarter: 2019Q4

REPORT INFORMATION
  Report Type: Spontaneous
  Country: US (occurrence: US)
  Receive Date: 20190923
  Receipt Date: 20190923
  Transmission Date: 20200122
  Serious: No
  Sender: FDA-Public Use
  Company Number: None

PATIENT
  Age: 57 Year
  Sex: Female
  Weight: 73.48 kg

DRUGS (1)
  1. DULCOLAX LAXATIVE [Suspect]
     Active Substance: BISACODYL

REACTIONS (2)
  - Abdominal pain [None]
  - Gastrointestinal disorder [None]

NARRATIVE: CASE EVENT DATE: 20190920
